FAERS Safety Report 8942075 (Version 1)
Quarter: 2012Q4

REPORT INFORMATION
  Report Type: 
  Country: US (occurrence: US)
  Receive Date: 20121130
  Receipt Date: 20121130
  Transmission Date: 20130627
  Serious: Yes (Hospitalization)
  Sender: FDA-Public Use
  Company Number: US-GLAXOSMITHKLINE-A0910418A

PATIENT
  Age: 43 Year
  Sex: Female
  Weight: 118.2 kg

DRUGS (1)
  1. AVANDIA [Suspect]
     Indication: DIABETES MELLITUS
     Dosage: 4MG Per day
     Route: 048
     Dates: start: 20061029, end: 200705

REACTIONS (4)
  - Cerebrovascular accident [Recovering/Resolving]
  - Chest pain [Unknown]
  - Asthenia [Unknown]
  - Transient ischaemic attack [Unknown]
